FAERS Safety Report 16192665 (Version 3)
Quarter: 2019Q2

REPORT INFORMATION
  Report Type: Spontaneous
  Country: JP (occurrence: JP)
  Receive Date: 20190412
  Receipt Date: 20190515
  Transmission Date: 20190711
  Serious: Yes (Life-Threatening, Other)
  Sender: FDA-Public Use
  Company Number: JP-ASTRAZENECA-2019SE54930

PATIENT
  Age: 68 Year

DRUGS (2)
  1. LYNPARZA [Suspect]
     Active Substance: OLAPARIB
     Indication: BREAST CANCER
     Route: 048
     Dates: start: 20190419, end: 20190510
  2. LYNPARZA [Suspect]
     Active Substance: OLAPARIB
     Indication: BREAST CANCER
     Route: 048
     Dates: start: 20190322, end: 20190404

REACTIONS (5)
  - Metastases to lymph nodes [Unknown]
  - Hepatic failure [Unknown]
  - Hepatic function abnormal [Not Recovered/Not Resolved]
  - Platelet count decreased [Recovered/Resolved]
  - Ascites [Not Recovered/Not Resolved]

NARRATIVE: CASE EVENT DATE: 20190401
